FAERS Safety Report 7733477-4 (Version None)
Quarter: 2011Q3

REPORT INFORMATION
  Report Type: 
  Country: None (occurrence: None)
  Receive Date: 20110907
  Receipt Date: 20110829
  Transmission Date: 20111222
  Serious: Yes (Other)
  Sender: FDA-Public Use
  Company Number: US-BAYER-2011-026054

PATIENT
  Age: 27 Year
  Sex: Female
  Weight: 149.66 kg

DRUGS (12)
  1. YAZ [Suspect]
     Indication: ACNE
     Dosage: UNK
     Route: 048
     Dates: start: 20080822, end: 20090427
  2. ETODOLAC [Concomitant]
     Dosage: 400 MG, ONCE
     Route: 048
  3. PROMETHAZINE [Concomitant]
     Indication: MULTIPLE ALLERGIES
     Dosage: 25 MG, HS
  4. HYDROCHLOROTHIAZIDE [Concomitant]
  5. ACETAMINOPHEN AND HYDROCODONE BITARTRATE [Concomitant]
     Indication: ARTHRALGIA
  6. YAZ [Suspect]
     Indication: PREMENSTRUAL SYNDROME
  7. YAZ [Suspect]
     Indication: POLYCYSTIC OVARIES
  8. ROPINIROLE [Concomitant]
     Indication: PARKINSON'S DISEASE
     Dosage: 0.25 MG, ONCE
  9. XANAX [Concomitant]
     Indication: ANXIETY
  10. PROTONIX [Concomitant]
     Indication: GASTROOESOPHAGEAL REFLUX DISEASE
     Dosage: 40 MG, ONCE
     Route: 048
  11. ACETAMINOPHEN AND HYDROCODONE BITARTRATE [Concomitant]
     Indication: BACK PAIN
     Dosage: UNK UNK, Q6WK
  12. CYCLOBENZAPRINE [Concomitant]
     Indication: MUSCLE SPASMS
     Dosage: 5 MG, TID

REACTIONS (4)
  - PULMONARY EMBOLISM [None]
  - MENTAL DISORDER [None]
  - ANXIETY [None]
  - PANIC REACTION [None]
